FAERS Safety Report 7210816-4 (Version None)
Quarter: 2011Q1

REPORT INFORMATION
  Report Type: 
  Country: None (occurrence: None)
  Receive Date: 20110105
  Receipt Date: 20101213
  Transmission Date: 20110831
  Serious: No
  Sender: FDA-Public Use
  Company Number: US-B.I. PHARMACEUTICALS,INC./RIDGEFIELD-2010-BP-14474BP

PATIENT
  Age: 64 Year
  Sex: Male

DRUGS (4)
  1. PAXIL [Concomitant]
     Indication: ANXIETY
     Route: 048
  2. PROPAFENONE HCL [Concomitant]
     Indication: CARDIAC DISORDER
     Route: 048
  3. PRADAXA [Suspect]
     Indication: ATRIAL FIBRILLATION
     Dosage: 300 MG
     Route: 048
     Dates: start: 20101201
  4. LIPITOR [Concomitant]
     Indication: BLOOD CHOLESTEROL
     Route: 048

REACTIONS (2)
  - DIZZINESS [None]
  - HEADACHE [None]
